FAERS Safety Report 23809696 (Version 1)
Quarter: 2024Q2

REPORT INFORMATION
  Report Type: Spontaneous
  Country: CN (occurrence: CN)
  Receive Date: 20240502
  Receipt Date: 20240502
  Transmission Date: 20240716
  Serious: Yes (Hospitalization, Other)
  Sender: FDA-Public Use
  Company Number: None

PATIENT
  Age: 74 Year
  Sex: Male
  Weight: 60 kg

DRUGS (4)
  1. CYCLOPHOSPHAMIDE [Suspect]
     Active Substance: CYCLOPHOSPHAMIDE
     Indication: Lymphoma
     Dosage: 1000 MG, ONE TIME IN ONE DAY, ST, DILUTED WITH 100 ML OF 0.9% SODIUM CHLORIDE
     Route: 041
     Dates: start: 20240330, end: 20240330
  2. SODIUM CHLORIDE [Suspect]
     Active Substance: SODIUM CHLORIDE
     Indication: Medication dilution
     Dosage: 100 ML (0.9%), ONE TIME IN ONE DAY, ST, USED TO DILUTE 1000 MG OF CYCLOPHOSPHAMIDE, DOSAGE FORM: INJ
     Route: 041
     Dates: start: 20240330, end: 20240330
  3. DEXTROSE [Suspect]
     Active Substance: DEXTROSE\DEXTROSE MONOHYDRATE
     Indication: Medication dilution
     Dosage: 100 ML (5%), ONE TIME IN ONE DAY, ST, USED TO DILUTE 50 MG OF PIRARUBICIN HYDROCHLORIDE, DOSAGE FORM
     Route: 041
     Dates: start: 20240330, end: 20240330
  4. PIRARUBICIN HYDROCHLORIDE [Suspect]
     Active Substance: PIRARUBICIN HYDROCHLORIDE
     Indication: Lymphoma
     Dosage: 50 MG, ONE TIME IN ONE DAY, ST, DILUTED WITH 100 ML OF 5% GLUCOSE
     Route: 041
     Dates: start: 20240330, end: 20240330

REACTIONS (3)
  - Myelosuppression [Recovered/Resolved]
  - White blood cell count decreased [Recovered/Resolved]
  - Neutrophil count decreased [Recovered/Resolved]

NARRATIVE: CASE EVENT DATE: 20240418
